FAERS Safety Report 25755542 (Version 1)
Quarter: 2025Q3

REPORT INFORMATION
  Report Type: Spontaneous
  Country: CN (occurrence: CN)
  Receive Date: 20250903
  Receipt Date: 20250903
  Transmission Date: 20251021
  Serious: Yes (Other)
  Sender: ROCHE
  Company Number: CN-ROCHE-10000375707

PATIENT
  Age: 52 Year
  Sex: Female

DRUGS (6)
  1. TRASTUZUMAB [Suspect]
     Active Substance: TRASTUZUMAB
     Indication: Breast cancer
     Route: 065
     Dates: start: 20220315
  2. PERTUZUMAB [Suspect]
     Active Substance: PERTUZUMAB
     Indication: Breast cancer
     Route: 065
     Dates: start: 20220315
  3. DOCETAXEL [Concomitant]
     Active Substance: DOCETAXEL
     Dates: start: 20220315
  4. CARBOPLATIN [Concomitant]
     Active Substance: CARBOPLATIN
     Dates: start: 20220315
  5. TRASTUZUMAB DERUXTECAN [Concomitant]
     Active Substance: TRASTUZUMAB DERUXTECAN
     Dates: start: 20230722
  6. NERATINIB [Concomitant]
     Active Substance: NERATINIB

REACTIONS (3)
  - Disease progression [Unknown]
  - Metastases to lymph nodes [Unknown]
  - Thrombocytopenia [Unknown]
